FAERS Safety Report 5918650-X (Version None)
Quarter: 2008Q3

REPORT INFORMATION
  Report Type: 
  Country: None (occurrence: None)
  Receive Date: 20080909
  Receipt Date: 20070814
  Transmission Date: 20090109
  Serious: Yes (Death)
  Sender: FDA-Public Use
  Company Number: 163-20785-07071662

PATIENT
  Age: 51 Year
  Sex: Male

DRUGS (2)
  1. THALOMID [Suspect]
     Indication: MULTIPLE MYELOMA
     Dosage: 150MG, DAILY, ORAL ; 150 MG TO 200MG, DAILY, ORAL
     Route: 048
     Dates: start: 20060201, end: 20060401
  2. THALOMID [Suspect]
     Indication: MULTIPLE MYELOMA
     Dosage: 150MG, DAILY, ORAL ; 150 MG TO 200MG, DAILY, ORAL
     Route: 048
     Dates: start: 20061201, end: 20061223

REACTIONS (2)
  - MALIGNANT NEOPLASM PROGRESSION [None]
  - MULTIPLE MYELOMA [None]
